FAERS Safety Report 10184728 (Version 1)
Quarter: 2014Q2

REPORT INFORMATION
  Report Type: Spontaneous
  Country: ES (occurrence: ES)
  Receive Date: 20140521
  Receipt Date: 20140521
  Transmission Date: 20141212
  Serious: Yes (Other)
  Sender: FDA-Public Use
  Company Number: ES-HORIZON-VIM-0044-2014

PATIENT
  Age: 52 Year
  Sex: Male

DRUGS (1)
  1. VIMOVO [Suspect]
     Indication: PERIARTHRITIS
     Route: 048
     Dates: start: 20140225, end: 20140307

REACTIONS (2)
  - Lip oedema [Unknown]
  - Paraesthesia [Unknown]
